FAERS Safety Report 8823781 (Version 4)
Quarter: 2015Q4

REPORT INFORMATION
  Report Type: Spontaneous
  Country: US (occurrence: US)
  Receive Date: 20121003
  Receipt Date: 20151204
  Transmission Date: 20160305
  Serious: Yes (Hospitalization, Other)
  Sender: FDA-Public Use
  Company Number: US-ASTRAZENECA-2012SE57733

PATIENT
  Age: 31564 Day
  Sex: Female

DRUGS (10)
  1. OMEGA 369 [Concomitant]
     Active Substance: FISH OIL
     Dosage: DAILY
     Route: 048
  2. BRILINTA [Suspect]
     Active Substance: TICAGRELOR
     Indication: MYOCARDIAL INFARCTION
     Route: 048
     Dates: start: 201204
  3. CRESTOR [Suspect]
     Active Substance: ROSUVASTATIN CALCIUM
     Indication: SCAR
     Route: 048
     Dates: start: 2014
  4. BRILINTA [Suspect]
     Active Substance: TICAGRELOR
     Indication: STENT PLACEMENT
     Route: 048
     Dates: start: 201204
  5. BABY ASPIRIN [Concomitant]
     Active Substance: ASPIRIN
     Dosage: DAILY
     Route: 048
     Dates: start: 201110
  6. BISOPROLOL FUMARATE. [Concomitant]
     Active Substance: BISOPROLOL FUMARATE
     Indication: BLOOD PRESSURE ABNORMAL
     Route: 048
     Dates: start: 201506
  7. COQ10 [Concomitant]
     Active Substance: UBIDECARENONE
     Route: 048
  8. NITROGLYCERIN. [Concomitant]
     Active Substance: NITROGLYCERIN
     Dosage: AS REQUIRED
  9. PROBIOTIC [Concomitant]
     Active Substance: PROBIOTICS NOS
     Dosage: DAILY
     Route: 048
  10. ISOSORBIDE MONONITRATE. [Concomitant]
     Active Substance: ISOSORBIDE MONONITRATE
     Route: 048

REACTIONS (14)
  - Upper limb fracture [Unknown]
  - Back pain [Unknown]
  - Oropharyngeal pain [Unknown]
  - Fatigue [Unknown]
  - Skin discolouration [Unknown]
  - Blood pressure increased [Unknown]
  - Vascular stent occlusion [Unknown]
  - Arterial occlusive disease [Unknown]
  - Cough [Unknown]
  - Arthropathy [Unknown]
  - Blood pressure decreased [Unknown]
  - Abdominal discomfort [Unknown]
  - Increased tendency to bruise [Unknown]
  - Pain [Unknown]

NARRATIVE: CASE EVENT DATE: 201501
